FAERS Safety Report 6929058-2 (Version None)
Quarter: 2010Q3

REPORT INFORMATION
  Report Type: 
  Country: None (occurrence: None)
  Receive Date: 20100817
  Receipt Date: 20100811
  Transmission Date: 20110219
  Serious: Yes (Hospitalization)
  Sender: FDA-Public Use
  Company Number: GB-WYE-G06504310

PATIENT
  Sex: Male

DRUGS (7)
  1. TYGACIL [Suspect]
     Indication: KLEBSIELLA INFECTION
     Route: 042
     Dates: start: 20100726, end: 20100729
  2. PENICILLIN G [Suspect]
     Route: 042
     Dates: start: 20100722, end: 20100726
  3. OMEPRAZOLE [Concomitant]
     Route: 048
  4. PREDNISOLONE [Concomitant]
     Dosage: UNKNOWN
     Route: 048
  5. COLISTIN [Concomitant]
     Indication: KLEBSIELLA INFECTION
     Dosage: 2M IU THREE TIMES DAILY
     Route: 042
     Dates: start: 20100724
  6. GENTAMICIN [Concomitant]
     Route: 042
     Dates: start: 20100722, end: 20100726
  7. ACETAMINOPHEN [Concomitant]
     Route: 048

REACTIONS (1)
  - HAEMOLYTIC ANAEMIA [None]
